FAERS Safety Report 4288812-9 (Version None)
Quarter: 2004Q1

REPORT INFORMATION
  Report Type: 
  Country: None (occurrence: None)
  Receive Date: 20040205
  Receipt Date: 20040120
  Transmission Date: 20041129
  Serious: Yes (Hospitalization)
  Sender: FDA-Public Use
  Company Number: 178444

PATIENT
  Age: 29 Year
  Sex: Male
  Weight: 97 kg

DRUGS (3)
  1. AVONEX [Suspect]
     Indication: MULTIPLE SCLEROSIS
     Dosage: 30 MCG QW; IM
     Route: 030
     Dates: start: 19980101, end: 20030826
  2. AVONEX [Suspect]
     Indication: MULTIPLE SCLEROSIS
     Dosage: 30 MCG QW; IM
     Route: 030
     Dates: start: 20031001
  3. PANTOPRAZOL [Concomitant]

REACTIONS (5)
  - CARDIAC FAILURE [None]
  - CARDIOMYOPATHY [None]
  - MYOCARDITIS [None]
  - NASOPHARYNGITIS [None]
  - PERICARDIAL EFFUSION [None]
